FAERS Safety Report 16162689 (Version 1)
Quarter: 2019Q2

REPORT INFORMATION
  Report Type: Spontaneous
  Country: US (occurrence: US)
  Receive Date: 20190304
  Receipt Date: 20190304
  Transmission Date: 20190711
  Serious: No
  Sender: FDA-Public Use
  Company Number: None

PATIENT
  Age: 52 Year
  Sex: Female
  Weight: 92.99 kg

DRUGS (6)
  1. ALLEGRA [Concomitant]
     Active Substance: FEXOFENADINE HYDROCHLORIDE
  2. SUDAFED [Concomitant]
     Active Substance: PSEUDOEPHEDRINE HYDROCHLORIDE
  3. PROZAC [Concomitant]
     Active Substance: FLUOXETINE HYDROCHLORIDE
  4. EMGALITY [Suspect]
     Active Substance: GALCANEZUMAB-GNLM
     Indication: MIGRAINE
     Dosage: ?          QUANTITY:2 DF DOSAGE FORM;?
     Dates: start: 20190201, end: 20190201
  5. IBUPROFEN. [Concomitant]
     Active Substance: IBUPROFEN
  6. FLONASE [Concomitant]
     Active Substance: FLUTICASONE PROPIONATE

REACTIONS (8)
  - Fatigue [None]
  - Arthralgia [None]
  - Sinus congestion [None]
  - Nausea [None]
  - Pruritus [None]
  - Myalgia [None]
  - Hypoaesthesia [None]
  - Dizziness [None]

NARRATIVE: CASE EVENT DATE: 20190202
